FAERS Safety Report 9081901 (Version 1)
Quarter: 2013Q1

REPORT INFORMATION
  Report Type: Spontaneous
  Country: PR (occurrence: PR)
  Receive Date: 20130130
  Receipt Date: 20130130
  Transmission Date: 20140127
  Serious: No
  Sender: FDA-Public Use
  Company Number: PR-ABBOTT-12P-131-0972062-00

PATIENT
  Age: 62 Year
  Sex: Female
  Weight: 99.88 kg

DRUGS (9)
  1. HUMIRA [Suspect]
     Indication: RHEUMATOID ARTHRITIS
     Route: 058
     Dates: start: 201206, end: 201208
  2. MIDOL [Concomitant]
     Dosage: DAILY
     Route: 048
  3. FOLIC ACID [Concomitant]
     Dosage: DAILY
     Route: 048
  4. METHOTREXATE [Concomitant]
     Dosage: 6 TABLETS WEEKLY
     Route: 048
  5. ENALAPRIL [Concomitant]
     Route: 048
  6. DOXAZOSIN MESYLATE [Concomitant]
     Dosage: DAILY
     Route: 048
  7. INSULIN N [Concomitant]
     Dosage: DAILY
     Route: 058
  8. INSULIN R [Concomitant]
     Dosage: DAILY
     Route: 058
  9. NITROGLYCERIN [Concomitant]
     Route: 060

REACTIONS (2)
  - Nasopharyngitis [Recovered/Resolved]
  - Asthma [Recovering/Resolving]
